FAERS Safety Report 9862385 (Version 1)
Quarter: 2014Q1

REPORT INFORMATION
  Report Type: Report from Study
  Country: US (occurrence: US)
  Receive Date: 20140203
  Receipt Date: 20140203
  Transmission Date: 20141002
  Serious: Yes (Disabling)
  Sender: FDA-Public Use
  Company Number: US-SA-2014SA010900

PATIENT
  Age: 6 Year
  Sex: Male
  Weight: 18.9 kg

DRUGS (13)
  1. LUMIZYME [Suspect]
     Indication: GLYCOGEN STORAGE DISEASE TYPE II
     Route: 065
     Dates: start: 20080129
  2. LUMIZYME [Suspect]
     Indication: GLYCOGEN STORAGE DISEASE TYPE II
     Route: 065
     Dates: start: 201306
  3. ACETAMINOPHEN [Concomitant]
     Indication: PAIN
     Route: 048
     Dates: start: 20120115
  4. ACETAMINOPHEN [Concomitant]
     Indication: PROPHYLAXIS
     Route: 048
     Dates: start: 20120115
  5. ACETAMINOPHEN [Concomitant]
     Indication: PAIN
     Route: 042
     Dates: start: 20120525
  6. ACETAMINOPHEN [Concomitant]
     Indication: PROPHYLAXIS
     Route: 042
     Dates: start: 20120525
  7. LIDOCAINE [Concomitant]
     Dosage: 1 APPLICATION
     Route: 061
     Dates: start: 20120330
  8. BUDESONIDE [Concomitant]
     Indication: ASTHMA
     Route: 065
     Dates: start: 20120316
  9. MUPIROCIN [Concomitant]
     Dosage: 1 APPLICATION
     Route: 061
     Dates: start: 20120908
  10. FERROUS SULFATE [Concomitant]
     Indication: ANAEMIA
     Route: 048
     Dates: start: 20120928
  11. HYDROCORTISONE [Concomitant]
     Route: 042
     Dates: start: 20120501
  12. CALCIUM CARBONATE [Concomitant]
     Indication: OSTEOPENIA
     Route: 048
     Dates: start: 20130308
  13. ERGOCALCIFEROL [Concomitant]
     Indication: OSTEOPENIA
     Route: 048
     Dates: start: 20130318

REACTIONS (2)
  - Motor dysfunction [Not Recovered/Not Resolved]
  - Motor dysfunction [Not Recovered/Not Resolved]
